FAERS Safety Report 12750868 (Version 4)
Quarter: 2016Q4

REPORT INFORMATION
  Report Type: Spontaneous
  Country: JP (occurrence: JP)
  Receive Date: 20160916
  Receipt Date: 20161115
  Transmission Date: 20170207
  Serious: Yes (Death, Life-Threatening, Hospitalization)
  Sender: FDA-Public Use
  Company Number: JP-009507513-1608JPN011040

PATIENT
  Age: 78 Year
  Sex: Female
  Weight: 38.6 kg

DRUGS (17)
  1. FUNGUARD (MICAFUNGIN SODIUM) [Concomitant]
     Dosage: 150 MG QD (DIVIDED DOSE FREQUENCY UNKNOWN)
     Route: 041
  2. LAC-B [Concomitant]
     Active Substance: BIFIDOBACTERIUM SPP.
     Dosage: 1 G, TID, FORMULATION: FINE GRANULES
     Route: 048
     Dates: start: 20160723, end: 20160823
  3. LANSOPRAZOLE OD [Suspect]
     Active Substance: LANSOPRAZOLE
     Indication: PROPHYLAXIS AGAINST GASTROINTESTINAL ULCER
     Dosage: 15 MG, QD
     Route: 048
     Dates: start: 20160706, end: 20160803
  4. SOL MELCORT [Concomitant]
     Active Substance: METHYLPREDNISOLONE
     Dosage: DAILY DOSAGE UNKNOWN
     Route: 051
  5. NASEA [Concomitant]
     Active Substance: RAMOSETRON HYDROCHLORIDE
     Indication: PROPHYLAXIS OF NAUSEA AND VOMITING
     Dosage: 0.1 MG, QD
     Route: 048
     Dates: start: 20160725, end: 20160803
  6. BACTRAMIN [Concomitant]
     Active Substance: SULFAMETHOXAZOLE\TRIMETHOPRIM
     Dosage: DAILY DOSAGE UNKNOWN
     Route: 041
     Dates: start: 20160804
  7. VFEND [Concomitant]
     Active Substance: VORICONAZOLE
     Dosage: 120 MG, QD (DIVIDED DOSE FREQUENCY UNKNOWN)
     Route: 041
  8. MAGNESIUM OXIDE. [Concomitant]
     Active Substance: MAGNESIUM OXIDE
     Indication: CONSTIPATION
     Dosage: 330 MG, TID
     Route: 048
     Dates: start: 20160702, end: 20160726
  9. E KEPPRA [Concomitant]
     Active Substance: LEVETIRACETAM
     Indication: EPILEPSY
     Dosage: 500 MG, BID
     Route: 048
     Dates: start: 20160713, end: 20160719
  10. PREDONINE [Concomitant]
     Active Substance: PREDNISOLONE\PREDNISOLONE ACETATE\PREDNISOLONE SODIUM SUCCINATE
     Dosage: DAILY DOSAGE UNKNOWN
     Route: 065
  11. E KEPPRA [Concomitant]
     Active Substance: LEVETIRACETAM
     Dosage: 250 MG, BID
     Route: 048
     Dates: start: 20160720, end: 20160726
  12. ACYCLOVIR. [Concomitant]
     Active Substance: ACYCLOVIR
     Dosage: 500 MG, QD (DIVIDED DOSE FREQUENCY UNKNOWN)
     Route: 051
  13. TEMODAL [Suspect]
     Active Substance: TEMOZOLOMIDE
     Indication: GLIOBLASTOMA MULTIFORME
     Dosage: 100 MG, QD
     Route: 048
     Dates: start: 20160725, end: 20160803
  14. BETAMETHASONE. [Concomitant]
     Active Substance: BETAMETHASONE
     Indication: BRAIN OEDEMA
     Dosage: 1 MG, BID
     Route: 048
     Dates: start: 20160615, end: 20160710
  15. VANCOMYCIN [Concomitant]
     Active Substance: VANCOMYCIN
     Dosage: 1 G, QD (DIVIDED DOSE FREQUENCY UNKNOWN)
     Route: 041
  16. ZYPREXA [Concomitant]
     Active Substance: OLANZAPINE
     Indication: VOMITING
     Dosage: 5 MG, QD
     Route: 048
     Dates: start: 20160721, end: 20160809
  17. BACTRAMIN [Concomitant]
     Active Substance: SULFAMETHOXAZOLE\TRIMETHOPRIM
     Dosage: 0.5 DF, QD
     Route: 048
     Dates: start: 20160725

REACTIONS (7)
  - Hepatic function abnormal [Not Recovered/Not Resolved]
  - Systemic mycosis [Fatal]
  - Interstitial lung disease [Fatal]
  - Pneumocystis jirovecii pneumonia [Fatal]
  - Renal impairment [Not Recovered/Not Resolved]
  - Bronchopulmonary aspergillosis [Not Recovered/Not Resolved]
  - Disseminated intravascular coagulation [Not Recovered/Not Resolved]

NARRATIVE: CASE EVENT DATE: 20160729
